FAERS Safety Report 25515064 (Version 3)
Quarter: 2025Q3

REPORT INFORMATION
  Report Type: Spontaneous
  Country: JP (occurrence: JP)
  Receive Date: 20250703
  Receipt Date: 20250721
  Transmission Date: 20251020
  Serious: Yes (Death, Other)
  Sender: JOHNSON AND JOHNSON
  Company Number: JP-JNJFOC-20250703623

PATIENT
  Age: 55 Year
  Sex: Female
  Weight: 41.5 kg

DRUGS (36)
  1. RYBREVANT [Suspect]
     Active Substance: AMIVANTAMAB-VMJW
     Indication: Lung adenocarcinoma recurrent
     Dosage: THERAPY START TIME - 11:43
     Route: 042
     Dates: start: 20250609, end: 20250609
  2. LAZCLUZE [Suspect]
     Active Substance: LAZERTINIB
     Indication: EGFR gene mutation
     Dosage: AFTER BREAKFAST
     Route: 048
     Dates: start: 20250607, end: 20250609
  3. LAZCLUZE [Suspect]
     Active Substance: LAZERTINIB
     Indication: Lung adenocarcinoma recurrent
  4. ELIQUIS [Concomitant]
     Active Substance: APIXABAN
     Indication: Product used for unknown indication
     Route: 048
     Dates: start: 20250607
  5. DECADRON [Concomitant]
     Active Substance: DEXAMETHASONE
     Indication: Prophylaxis
     Route: 048
     Dates: start: 20250607, end: 20250608
  6. DECADRON [Concomitant]
     Active Substance: DEXAMETHASONE
     Route: 048
     Dates: start: 20250609, end: 20250609
  7. DEXAMETHASONE ACETATE [Concomitant]
     Active Substance: DEXAMETHASONE ACETATE
     Indication: Prophylaxis
     Route: 042
     Dates: start: 20250609, end: 20250609
  8. FEXOFENADINE HYDROCHLORIDE [Concomitant]
     Active Substance: FEXOFENADINE HYDROCHLORIDE
     Indication: Product used for unknown indication
     Route: 048
     Dates: start: 20250608
  9. FAMOTIDINE [Concomitant]
     Active Substance: FAMOTIDINE
     Indication: Product used for unknown indication
     Route: 048
     Dates: start: 20250117
  10. FAMOTIDINE [Concomitant]
     Active Substance: FAMOTIDINE
     Route: 048
     Dates: start: 20250107
  11. ASCORBIC ACID\VITAMINS [Concomitant]
     Active Substance: ASCORBIC ACID\VITAMINS
     Indication: Product used for unknown indication
     Route: 048
     Dates: start: 20250327
  12. NAPROXEN SODIUM [Concomitant]
     Active Substance: NAPROXEN SODIUM
     Indication: Product used for unknown indication
     Route: 048
     Dates: start: 20250116
  13. TRAMADOL [Concomitant]
     Active Substance: TRAMADOL
     Indication: Product used for unknown indication
     Route: 048
     Dates: start: 20250117
  14. MYSER [Concomitant]
     Indication: Product used for unknown indication
     Route: 061
     Dates: start: 20250607
  15. OXYGEN [Concomitant]
     Active Substance: OXYGEN
     Indication: Product used for unknown indication
     Route: 055
  16. OXYGEN [Concomitant]
     Active Substance: OXYGEN
     Route: 055
     Dates: start: 20250609
  17. OXYGEN [Concomitant]
     Active Substance: OXYGEN
     Route: 055
     Dates: start: 20250609
  18. OXYGEN [Concomitant]
     Active Substance: OXYGEN
     Route: 055
     Dates: start: 20250609
  19. OXYGEN [Concomitant]
     Active Substance: OXYGEN
     Route: 055
  20. OXYGEN [Concomitant]
     Active Substance: OXYGEN
     Route: 055
  21. OXYGEN [Concomitant]
     Active Substance: OXYGEN
     Dosage: THERAPY START TIME 14:56
     Route: 055
     Dates: start: 20250609
  22. OXYGEN [Concomitant]
     Active Substance: OXYGEN
     Dosage: THERAPY START TIME 14:57
     Route: 055
     Dates: start: 20250609
  23. OXYGEN [Concomitant]
     Active Substance: OXYGEN
     Dosage: THERAPY START TIME 14:59
     Route: 055
     Dates: start: 20250609
  24. ALCLOMETASONE DIPROPIONATE [Concomitant]
     Active Substance: ALCLOMETASONE DIPROPIONATE
     Indication: Product used for unknown indication
     Route: 065
  25. HEPARINOID [Concomitant]
     Indication: Product used for unknown indication
     Route: 061
     Dates: start: 20250607
  26. HEPARINOID [Concomitant]
     Indication: Product used for unknown indication
     Route: 065
     Dates: start: 20250607
  27. EPRAZINONE [Concomitant]
     Active Substance: EPRAZINONE
     Indication: Product used for unknown indication
     Route: 048
  28. CARBOCYSTEINE [Concomitant]
     Active Substance: CARBOCYSTEINE
     Indication: Product used for unknown indication
     Route: 048
  29. HERBALS [Concomitant]
     Active Substance: HERBALS
     Indication: Product used for unknown indication
     Route: 048
  30. MONTELUKAST SODIUM [Concomitant]
     Active Substance: MONTELUKAST SODIUM
     Indication: Product used for unknown indication
     Route: 048
  31. DECADRON [Concomitant]
     Active Substance: DEXAMETHASONE
     Indication: Prophylaxis
     Route: 048
     Dates: start: 20250607, end: 20250608
  32. DECADRON [Concomitant]
     Active Substance: DEXAMETHASONE
     Route: 048
     Dates: start: 20250609, end: 20250609
  33. ASCORBIC ACID\VITAMINS [Concomitant]
     Active Substance: ASCORBIC ACID\VITAMINS
     Indication: Product used for unknown indication
     Route: 048
     Dates: start: 20250327
  34. NAPROXEN SODIUM [Concomitant]
     Active Substance: NAPROXEN SODIUM
     Indication: Product used for unknown indication
     Route: 048
     Dates: start: 20250116
  35. CELESTAMINE [Concomitant]
     Active Substance: BETAMETHASONE\DEXCHLORPHENIRAMINE MALEATE
     Indication: Product used for unknown indication
     Route: 048
     Dates: start: 20250608
  36. MYSER [Concomitant]
     Indication: Product used for unknown indication
     Route: 061
     Dates: start: 20250607

REACTIONS (6)
  - Lung adenocarcinoma recurrent [Fatal]
  - Infusion related reaction [Unknown]
  - Hypotension [Unknown]
  - Hypoxia [Unknown]
  - Hyperhidrosis [Unknown]
  - Nausea [Unknown]

NARRATIVE: CASE EVENT DATE: 20250601
